FAERS Safety Report 8152281-9 (Version None)
Quarter: 2012Q1

REPORT INFORMATION
  Report Type: 
  Country: None (occurrence: None)
  Receive Date: 20120221
  Receipt Date: 20120216
  Transmission Date: 20120608
  Serious: Yes (Other)
  Sender: FDA-Public Use
  Company Number: GB-PFIZER INC-2012042815

PATIENT
  Age: 41 Year
  Sex: Male

DRUGS (2)
  1. VARENICLINE TARTRATE [Suspect]
     Indication: SMOKING CESSATION THERAPY
     Dosage: UNK
     Route: 048
     Dates: start: 20120113, end: 20120127
  2. VARENICLINE TARTRATE [Suspect]
     Dosage: 1 MG, 2X/DAY
     Route: 048
     Dates: start: 20120128, end: 20120203

REACTIONS (7)
  - FLATULENCE [None]
  - PAIN IN EXTREMITY [None]
  - ABDOMINAL DISTENSION [None]
  - SNORING [None]
  - OEDEMA MOUTH [None]
  - MOUTH HAEMORRHAGE [None]
  - HEADACHE [None]
